FAERS Safety Report 4839483-1 (Version None)
Quarter: 2005Q4

REPORT INFORMATION
  Report Type: 
  Country: None (occurrence: None)
  Receive Date: 20051129
  Receipt Date: 20050824
  Transmission Date: 20060501
  Serious: Yes (Hospitalization, Disabling, Other)
  Sender: FDA-Public Use
  Company Number: US-MERCK-0508USA04271

PATIENT
  Age: 77 Year
  Sex: Female
  Weight: 68 kg

DRUGS (13)
  1. VIOXX [Suspect]
     Indication: OSTEOARTHRITIS
     Route: 048
     Dates: start: 20000101, end: 20010101
  2. PRILOSEC [Concomitant]
     Route: 065
  3. DETROL [Concomitant]
     Route: 065
  4. EVISTA [Concomitant]
     Route: 065
  5. LESCOL [Concomitant]
     Route: 065
     Dates: end: 20020101
  6. ATENOLOL [Concomitant]
     Route: 065
  7. ISOSORBIDE [Concomitant]
     Route: 065
  8. PLAVIX [Concomitant]
     Route: 065
  9. PROZAC [Concomitant]
     Route: 065
  10. DIAZEPAM [Concomitant]
     Route: 065
  11. ARICEPT [Concomitant]
     Route: 065
  12. METOPROLOL [Concomitant]
     Route: 065
  13. ASPIRIN [Concomitant]
     Route: 065

REACTIONS (7)
  - ACUTE MYOCARDIAL INFARCTION [None]
  - ANXIETY [None]
  - CEREBROVASCULAR ACCIDENT [None]
  - DEPRESSION [None]
  - HIP FRACTURE [None]
  - MENTAL STATUS CHANGES [None]
  - UTERINE PROLAPSE [None]
